FAERS Safety Report 4498342-7 (Version None)
Quarter: 2004Q4

REPORT INFORMATION
  Report Type: 
  Country: None (occurrence: None)
  Receive Date: 20041104
  Receipt Date: 20040917
  Transmission Date: 20050328
  Serious: Yes (Hospitalization)
  Sender: FDA-Public Use
  Company Number: 8900

PATIENT
  Age: 74 Year
  Sex: Male

DRUGS (6)
  1. AMIODARONE [Suspect]
     Indication: ATRIAL FIBRILLATION
     Dosage: 200 MG TID, PO
     Route: 048
     Dates: start: 20040814
  2. LACTULOSE [Concomitant]
  3. SENNA [Concomitant]
  4. DIGOXIN [Concomitant]
  5. FRUSEMIDE [Concomitant]
  6. ACETAMINOPHEN [Concomitant]

REACTIONS (1)
  - VASCULITIS [None]
